FAERS Safety Report 19147624 (Version 1)
Quarter: 2021Q2

REPORT INFORMATION
  Report Type: Spontaneous
  Country: US (occurrence: US)
  Receive Date: 20210416
  Receipt Date: 20210416
  Transmission Date: 20210717
  Serious: No
  Sender: FDA-Public Use
  Company Number: US-SEBELA IRELAND LIMITED-2020SEB00088

PATIENT
  Age: 43 Year
  Sex: Female
  Weight: 81.63 kg

DRUGS (12)
  1. UNSPECIFIED STIMULANT FOR THE BATHROOM [Concomitant]
  2. SERTRALINE [Concomitant]
     Active Substance: SERTRALINE HYDROCHLORIDE
     Dosage: 200 MG, 1X/DAY
  3. AZATHIOPRINE. [Suspect]
     Active Substance: AZATHIOPRINE
     Dosage: UNK
  4. RASUVO [Suspect]
     Active Substance: METHOTREXATE SODIUM
     Indication: ARTHRITIS
     Dosage: 15 MG, 1X/WEEK AT 8 PM ON FRIDAY INJECTED ^2 INCHES FROM THE BELLY BUTTON, DIAGNALLY AND DOWN^
     Dates: start: 20200515
  5. RASUVO [Suspect]
     Active Substance: METHOTREXATE SODIUM
     Indication: RHEUMATOID ARTHRITIS
  6. FLEXERIL [Concomitant]
     Active Substance: CYCLOBENZAPRINE HYDROCHLORIDE
     Dosage: UNK, 1X/DAY
  7. ESTROGEN [Concomitant]
     Active Substance: ESTROGENS
  8. VALIUM [Concomitant]
     Active Substance: DIAZEPAM
     Dosage: UNK
     Dates: start: 202005
  9. XANAX [Concomitant]
     Active Substance: ALPRAZOLAM
     Dosage: UNK, AS NEEDED
  10. DULOXETINE. [Concomitant]
     Active Substance: DULOXETINE
     Dosage: 120 MG
  11. UNSPECIFIED VITAMINS [Concomitant]
     Active Substance: VITAMINS
  12. AZO CREAM [Concomitant]

REACTIONS (5)
  - Fatigue [Recovering/Resolving]
  - Anxiety [Unknown]
  - Dizziness [Unknown]
  - Hypersomnia [Recovering/Resolving]
  - Unevaluable event [Unknown]

NARRATIVE: CASE EVENT DATE: 202005
